FAERS Safety Report 4994365-X (Version None)
Quarter: 2006Q2

REPORT INFORMATION
  Report Type: 
  Country: None (occurrence: None)
  Receive Date: 20060505
  Receipt Date: 20060504
  Transmission Date: 20061013
  Serious: Yes (Life-Threatening, Hospitalization)
  Sender: FDA-Public Use
  Company Number: US-BOEHRINGER INGELHEIM PHARMACEUTICALS, INC.-2006-BP-05100BP

PATIENT
  Age: 57 Year
  Sex: Female

DRUGS (5)
  1. SPIRIVA [Suspect]
     Indication: CHRONIC OBSTRUCTIVE PULMONARY DISEASE
     Route: 055
     Dates: start: 20060422, end: 20060501
  2. CATAPRES-TTS-1 [Suspect]
     Indication: HYPERTENSION
     Route: 061
  3. NEURONTIN [Concomitant]
     Indication: NERVE INJURY
     Route: 048
  4. LASIX [Concomitant]
     Indication: HYPERTENSION
     Route: 048
  5. POTASSIUM SUPPLEMENT [Concomitant]
     Indication: VITAMIN SUPPLEMENTATION
     Route: 048

REACTIONS (4)
  - ARRHYTHMIA [None]
  - BLOOD PRESSURE ABNORMAL [None]
  - HEART RATE ABNORMAL [None]
  - HEART RATE INCREASED [None]
